FAERS Safety Report 4434356-0 (Version None)
Quarter: 2004Q3

REPORT INFORMATION
  Report Type: 
  Country: None (occurrence: None)
  Receive Date: 20040826
  Receipt Date: 20030929
  Transmission Date: 20050211
  Serious: Yes (Hospitalization, Disabling)
  Sender: FDA-Public Use
  Company Number: US-MERCK-0310USA00114

PATIENT
  Age: 66 Year
  Sex: Female
  Weight: 88 kg

DRUGS (8)
  1. ELAVIL [Concomitant]
     Route: 065
  2. NORVASC [Concomitant]
     Route: 065
  3. HYDROCODONE BITARTRATE [Concomitant]
     Route: 065
     Dates: start: 20001201
  4. PROPRANOLOL HYDROCHLORIDE [Concomitant]
     Route: 065
  5. VIOXX [Suspect]
     Indication: ARTHRITIS
     Route: 048
     Dates: start: 19990101, end: 20010101
  6. VIOXX [Suspect]
     Route: 048
     Dates: start: 20010101, end: 20010101
  7. ULTRAM [Concomitant]
     Route: 065
  8. EFFEXOR [Concomitant]
     Route: 065

REACTIONS (45)
  - ABDOMINAL PAIN UPPER [None]
  - ALOPECIA [None]
  - AMNESIA [None]
  - ARTHRALGIA [None]
  - CARCINOMA [None]
  - CARDIAC MURMUR [None]
  - CARPAL TUNNEL SYNDROME [None]
  - CHONDROMALACIA [None]
  - CONTUSION [None]
  - DELIRIUM [None]
  - DISABILITY [None]
  - DYSPNOEA [None]
  - ELECTROCARDIOGRAM ST SEGMENT ABNORMAL [None]
  - EMOTIONAL DISTRESS [None]
  - ESSENTIAL HYPERTENSION [None]
  - FATIGUE [None]
  - FIBROMYALGIA [None]
  - GASTRIC DISORDER [None]
  - HAEMORRHAGE [None]
  - HEADACHE [None]
  - HYPOAESTHESIA [None]
  - KELOID SCAR [None]
  - MAJOR DEPRESSION [None]
  - MENISCUS LESION [None]
  - MIGRAINE WITHOUT AURA [None]
  - MONARTHRITIS [None]
  - NAUSEA [None]
  - NECK PAIN [None]
  - NON-CARDIAC CHEST PAIN [None]
  - OSTEOARTHRITIS [None]
  - PAIN IN EXTREMITY [None]
  - PALPITATIONS [None]
  - PANIC DISORDER WITH AGORAPHOBIA [None]
  - PARAESTHESIA [None]
  - PEPTIC ULCER [None]
  - ROTATOR CUFF SYNDROME [None]
  - SKIN LESION [None]
  - SWELLING [None]
  - SYNOVITIS [None]
  - TENOSYNOVITIS [None]
  - TENSION HEADACHE [None]
  - TRANSIENT ISCHAEMIC ATTACK [None]
  - URINARY TRACT DISORDER [None]
  - URINE ODOUR ABNORMAL [None]
  - VOMITING [None]
